FAERS Safety Report 5295820-8 (Version None)
Quarter: 2007Q2

REPORT INFORMATION
  Report Type: 
  Country: None (occurrence: None)
  Receive Date: 20070406
  Receipt Date: 20070327
  Transmission Date: 20071010
  Serious: Yes (Life-Threatening, Hospitalization, Other)
  Sender: FDA-Public Use
  Company Number: 2007RR-06656

PATIENT
  Age: 87 Year
  Sex: Female

DRUGS (7)
  1. CIPROFLOXACIN [Suspect]
     Dosage: 500 MG, BID, ORAL
     Route: 048
     Dates: start: 20070223, end: 20070228
  2. AMLODIPINE MALEATE (AMLODIPINE) [Concomitant]
  3. ATENOLOL [Concomitant]
  4. CODEINE PHOSPHATE (CODEINE) [Concomitant]
  5. HYDROCORTISONE [Concomitant]
  6. METYRAPONE [Concomitant]
  7. TRIMETHOPRIM [Concomitant]

REACTIONS (1)
  - MYELODYSPLASTIC SYNDROME [None]
